FAERS Safety Report 7565605-8 (Version None)
Quarter: 2011Q2

REPORT INFORMATION
  Report Type: 
  Country: None (occurrence: None)
  Receive Date: 20110616
  Receipt Date: 20110608
  Transmission Date: 20111010
  Serious: Yes (Other)
  Sender: FDA-Public Use
  Company Number: 2010S1001075

PATIENT
  Age: 73 Year
  Sex: Male

DRUGS (5)
  1. LIVALO [Suspect]
     Indication: BLOOD CHOLESTEROL INCREASED
     Dosage: 2 MG; PO
     Route: 048
     Dates: end: 20101219
  2. COUMADIN [Concomitant]
  3. INSULIN [Concomitant]
  4. LASIX [Concomitant]
  5. PLAVIX [Concomitant]

REACTIONS (5)
  - GAIT DISTURBANCE [None]
  - MYALGIA [None]
  - OLIGURIA [None]
  - RENAL DISORDER [None]
  - MUSCULAR WEAKNESS [None]
